FAERS Safety Report 10243595 (Version 1)
Quarter: 2014Q2

REPORT INFORMATION
  Report Type: Spontaneous
  Country: US (occurrence: US)
  Receive Date: 20140618
  Receipt Date: 20140618
  Transmission Date: 20141212
  Serious: No
  Sender: FDA-Public Use
  Company Number: US-PFIZER INC-2014164110

PATIENT
  Age: 58 Year
  Sex: Female
  Weight: 102 kg

DRUGS (1)
  1. RAMIPRIL [Suspect]
     Dosage: 10 MG, DAILY

REACTIONS (3)
  - Headache [Unknown]
  - Viral infection [Unknown]
  - Drug ineffective [Recovered/Resolved]
